FAERS Safety Report 4368646-7 (Version None)
Quarter: 2004Q2

REPORT INFORMATION
  Report Type: 
  Country: None (occurrence: None)
  Receive Date: 20040602
  Receipt Date: 20040519
  Transmission Date: 20050107
  Serious: Yes (Life-Threatening, Hospitalization)
  Sender: FDA-Public Use
  Company Number: ES-2004-025365

PATIENT
  Age: 32 Year
  Sex: Female
  Weight: 65 kg

DRUGS (1)
  1. ULTRAVIST 370 [Suspect]
     Indication: UROGRAPHY
     Dosage: 80 ML, 1 DOSE, INTRAVENOUS
     Route: 042
     Dates: start: 20040427, end: 20040427

REACTIONS (12)
  - ABDOMINAL PAIN [None]
  - ANAPHYLACTIC SHOCK [None]
  - APHASIA [None]
  - CALCULUS URETERIC [None]
  - CONTRAST MEDIA REACTION [None]
  - HAEMATURIA [None]
  - HYPOTONIA [None]
  - LEUKOCYTURIA [None]
  - MALAISE [None]
  - NITRITE URINE PRESENT [None]
  - RENAL IMPAIRMENT [None]
  - VOMITING [None]
